FAERS Safety Report 19918188 (Version 1)
Quarter: 2021Q4

REPORT INFORMATION
  Report Type: Spontaneous
  Country: US (occurrence: US)
  Receive Date: 20211004
  Receipt Date: 20211004
  Transmission Date: 20220303
  Serious: Yes (Hospitalization)
  Sender: FDA-Public Use
  Company Number: None

PATIENT
  Age: 14 Month
  Sex: Female

DRUGS (1)
  1. SILDENAFIL [Suspect]
     Active Substance: SILDENAFIL
     Indication: Bronchopulmonary dysplasia
     Route: 048
     Dates: start: 20201114

REACTIONS (1)
  - Brain operation [None]

NARRATIVE: CASE EVENT DATE: 20210824
